FAERS Safety Report 8357199-4 (Version None)
Quarter: 2012Q2

REPORT INFORMATION
  Report Type: 
  Country: None (occurrence: None)
  Receive Date: 20120514
  Receipt Date: 20120504
  Transmission Date: 20120825
  Serious: Yes (Hospitalization)
  Sender: FDA-Public Use
  Company Number: FR-EISAI INC-E3810-05516-SPO-FR

PATIENT
  Sex: Female

DRUGS (11)
  1. CLOBAZAM [Suspect]
     Route: 048
     Dates: start: 20111108
  2. LASIX [Concomitant]
  3. LEXOMIL [Suspect]
     Route: 048
     Dates: start: 20110101
  4. NITROGLYCERIN [Concomitant]
  5. ACIPHEX [Suspect]
     Dosage: UNKNOWN
     Route: 048
  6. ALDACTONE [Concomitant]
  7. DURAGESIC-100 [Suspect]
     Route: 062
     Dates: start: 20111108, end: 20120220
  8. SULFARLEM [Concomitant]
  9. PREGABALIN [Suspect]
     Route: 048
     Dates: start: 20110913
  10. POLYETHYLENE GLYCOL [Concomitant]
  11. PROCORALAN [Concomitant]

REACTIONS (2)
  - DEPRESSED LEVEL OF CONSCIOUSNESS [None]
  - RESPIRATORY DISTRESS [None]
